FAERS Safety Report 5166017-7 (Version None)
Quarter: 2006Q4

REPORT INFORMATION
  Report Type: 
  Country: None (occurrence: None)
  Receive Date: 20061128
  Receipt Date: 20061116
  Transmission Date: 20070319
  Serious: Yes (Hospitalization)
  Sender: FDA-Public Use
  Company Number: S06-USA-04863-01

PATIENT
  Age: 21 Year
  Sex: Female

DRUGS (4)
  1. LEXAPRO [Suspect]
     Indication: ANXIETY
     Dosage: 10 MG QD PO
     Route: 048
     Dates: start: 20061026
  2. LAMICTAL [Concomitant]
  3. KEPPRA [Concomitant]
  4. YASMIN (ESTROGEN/PROGESTIN) [Concomitant]

REACTIONS (10)
  - CONDITION AGGRAVATED [None]
  - CONTUSION [None]
  - FALL [None]
  - GRAND MAL CONVULSION [None]
  - HEAD INJURY [None]
  - LOSS OF CONSCIOUSNESS [None]
  - MIGRAINE [None]
  - MYOCLONUS [None]
  - SWELLING [None]
  - VOMITING [None]
